FAERS Safety Report 21571888 (Version 1)
Quarter: 2022Q4

REPORT INFORMATION
  Report Type: Spontaneous
  Country: RU (occurrence: RU)
  Receive Date: 20221109
  Receipt Date: 20221109
  Transmission Date: 20230113
  Serious: Yes (Other)
  Sender: FDA-Public Use
  Company Number: RU-002147023-NVSC2022RU248725

PATIENT
  Sex: Male

DRUGS (3)
  1. CYTARABINE [Suspect]
     Active Substance: CYTARABINE
     Indication: Foetal exposure during pregnancy
     Dosage: MATERNAL EXPOSURE DURING PREGNANCY: UNK
     Route: 064
  2. METHOTREXATE [Suspect]
     Active Substance: METHOTREXATE
     Indication: Foetal exposure during pregnancy
     Dosage: MATERNAL EXPOSURE DURING PREGNANCY:UNK
     Route: 064
  3. CYCLOPHOSPHAMIDE [Suspect]
     Active Substance: CYCLOPHOSPHAMIDE
     Indication: Foetal exposure during pregnancy
     Dosage: MATERNAL EXPOSURE DURING PREGNANCY: UNK
     Route: 064

REACTIONS (3)
  - Hypoxia [Unknown]
  - Premature baby [Unknown]
  - Foetal exposure during pregnancy [Unknown]
